FAERS Safety Report 19200972 (Version 2)
Quarter: 2021Q2

REPORT INFORMATION
  Report Type: Spontaneous
  Country: US (occurrence: US)
  Receive Date: 20210430
  Receipt Date: 20210614
  Transmission Date: 20210717
  Serious: Yes (Hospitalization, Other)
  Sender: FDA-Public Use
  Company Number: US-LUPIN PHARMACEUTICALS INC.-2021-05884

PATIENT
  Age: 14 Year
  Sex: Female

DRUGS (22)
  1. CAMPATH [Concomitant]
     Active Substance: ALEMTUZUMAB
     Indication: GRAFT VERSUS HOST DISEASE IN GASTROINTESTINAL TRACT
  2. INFLIXIMAB [Suspect]
     Active Substance: INFLIXIMAB
     Indication: IMMUNOSUPPRESSANT DRUG THERAPY
  3. GANCICLOVIR. [Concomitant]
     Active Substance: GANCICLOVIR
     Dosage: 7.5 MILLIGRAM/KILOGRAM, BID
     Route: 042
  4. FOSCARNET [Concomitant]
     Active Substance: FOSCARNET
     Dosage: 60 MILLIGRAM/KILOGRAM, QD, MAINTENANCE DOSING
     Route: 042
  5. BUDESONIDE. [Suspect]
     Active Substance: BUDESONIDE
     Indication: GRAFT VERSUS HOST DISEASE
     Dosage: UNK
     Route: 065
  6. BUDESONIDE. [Suspect]
     Active Substance: BUDESONIDE
     Indication: IMMUNOSUPPRESSANT DRUG THERAPY
  7. METHYLPREDNISOLONE. [Suspect]
     Active Substance: METHYLPREDNISOLONE
     Indication: GRAFT VERSUS HOST DISEASE
     Dosage: UNK UNK, QD (1?2 MG/KG)
     Route: 065
  8. TACROLIMUS. [Suspect]
     Active Substance: TACROLIMUS
     Indication: PROPHYLAXIS AGAINST GRAFT VERSUS HOST DISEASE
     Dosage: UNK
     Route: 065
  9. LETERMOVIR [Concomitant]
     Active Substance: LETERMOVIR
     Dosage: 480 MILLIGRAM, QD (STOPPED)
     Route: 048
  10. CYCLOSPORINE. [Suspect]
     Active Substance: CYCLOSPORINE
     Indication: IMMUNOSUPPRESSANT DRUG THERAPY
  11. GANCICLOVIR. [Concomitant]
     Active Substance: GANCICLOVIR
     Indication: ANTIVIRAL TREATMENT
     Dosage: 5 MILLIGRAM/KILOGRAM, BID
     Route: 042
  12. FOSCARNET [Concomitant]
     Active Substance: FOSCARNET
     Indication: ANTIVIRAL TREATMENT
     Dosage: 60 MILLIGRAM/KILOGRAM, TID
     Route: 042
  13. FOSCARNET [Concomitant]
     Active Substance: FOSCARNET
     Dosage: 90 MILLIGRAM/KILOGRAM, BID
     Route: 042
  14. CYCLOSPORINE. [Suspect]
     Active Substance: CYCLOSPORINE
     Indication: PROPHYLAXIS AGAINST GRAFT VERSUS HOST DISEASE
     Dosage: UNK
     Route: 065
  15. MYCOPHENOLATE MOFETIL. [Suspect]
     Active Substance: MYCOPHENOLATE MOFETIL
     Indication: PROPHYLAXIS AGAINST GRAFT VERSUS HOST DISEASE
     Dosage: UNK
     Route: 065
  16. LETERMOVIR [Concomitant]
     Active Substance: LETERMOVIR
     Indication: ANTIVIRAL TREATMENT
     Dosage: 480 MILLIGRAM, QD (STOPPED)
     Route: 042
  17. METHYLPREDNISOLONE. [Suspect]
     Active Substance: METHYLPREDNISOLONE
     Indication: IMMUNOSUPPRESSANT DRUG THERAPY
  18. INFLIXIMAB [Suspect]
     Active Substance: INFLIXIMAB
     Indication: PROPHYLAXIS AGAINST GRAFT VERSUS HOST DISEASE
     Dosage: UNK
     Route: 065
  19. TACROLIMUS. [Suspect]
     Active Substance: TACROLIMUS
     Indication: IMMUNOSUPPRESSANT DRUG THERAPY
  20. GANCICLOVIR. [Concomitant]
     Active Substance: GANCICLOVIR
     Dosage: 10 MILLIGRAM/KILOGRAM, BID
     Route: 042
  21. MYCOPHENOLATE MOFETIL. [Suspect]
     Active Substance: MYCOPHENOLATE MOFETIL
     Indication: IMMUNOSUPPRESSANT DRUG THERAPY
  22. CAMPATH [Concomitant]
     Active Substance: ALEMTUZUMAB
     Indication: GRAFT VERSUS HOST DISEASE IN SKIN
     Dosage: ADDED ON DAY 95
     Route: 065

REACTIONS (2)
  - Cytomegalovirus enterocolitis [Recovering/Resolving]
  - Drug ineffective [Unknown]
